FAERS Safety Report 11725021 (Version 1)
Quarter: 2015Q4

REPORT INFORMATION
  Report Type: Spontaneous
  Country: US (occurrence: US)
  Receive Date: 20151111
  Receipt Date: 20151111
  Transmission Date: 20160304
  Serious: No
  Sender: FDA-Public Use
  Company Number: US-UCBSA-2014008264

PATIENT
  Age: 43 Year
  Sex: Female
  Weight: 72.56 kg

DRUGS (3)
  1. VIMPAT [Suspect]
     Active Substance: LACOSAMIDE
     Indication: SEIZURE
     Dosage: 50 MG, 5 DAILY
  2. ALEVE [Concomitant]
     Active Substance: NAPROXEN SODIUM
     Indication: MIGRAINE
  3. KEPPRA XR [Suspect]
     Active Substance: LEVETIRACETAM
     Indication: SEIZURE
     Dosage: 500 MG 2 DAILY

REACTIONS (12)
  - Contusion [Recovered/Resolved]
  - Blister [Recovered/Resolved]
  - Rash [Recovered/Resolved]
  - Tooth disorder [Recovered/Resolved]
  - Haemorrhage [Recovered/Resolved]
  - Scab [Recovered/Resolved]
  - Fall [Recovered/Resolved]
  - Thermal burn [Not Recovered/Not Resolved]
  - Migraine [Recovered/Resolved]
  - Limb injury [Recovered/Resolved]
  - Unevaluable event [Unknown]
  - Malaise [Recovered/Resolved]

NARRATIVE: CASE EVENT DATE: 20140923
